FAERS Safety Report 6404073-6 (Version None)
Quarter: 2009Q4

REPORT INFORMATION
  Report Type: 
  Country: None (occurrence: None)
  Receive Date: 20091016
  Receipt Date: 20091007
  Transmission Date: 20100525
  Serious: Yes (Other)
  Sender: FDA-Public Use
  Company Number: BR-JNJFOC-20091003555

PATIENT
  Sex: Female

DRUGS (3)
  1. ULTRACET [Suspect]
     Indication: ANALGESIC THERAPY
     Dosage: 325MG ACETAMINOPHEN AND 37.5MG TRAMADOL HYDROCHLORIDE
  2. VENLAFAXINE [Suspect]
     Indication: ANTIDEPRESSANT THERAPY
  3. AMITRIPTYLINE [Suspect]
     Indication: ANTIDEPRESSANT THERAPY

REACTIONS (2)
  - HYPERSENSITIVITY [None]
  - SKIN LESION [None]
